FAERS Safety Report 4485767-9 (Version None)
Quarter: 2004Q4

REPORT INFORMATION
  Report Type: 
  Country: None (occurrence: None)
  Receive Date: 20041026
  Receipt Date: 20041015
  Transmission Date: 20050328
  Serious: Yes (Death)
  Sender: FDA-Public Use
  Company Number: GB-SOLVAY-00204003770

PATIENT
  Age: 34677 Day
  Sex: Female

DRUGS (1)
  1. BLINDED THERAPY PERINDOPRIL VS PLACEBO [Suspect]
     Indication: CARDIAC FAILURE CONGESTIVE
     Dosage: DAILY DOSE: 1 DOSAGE FORM
     Route: 048
     Dates: start: 20000511, end: 20020129

REACTIONS (1)
  - DEATH [None]
